FAERS Safety Report 11913726 (Version 4)
Quarter: 2017Q1

REPORT INFORMATION
  Report Type: Spontaneous
  Country: US (occurrence: US)
  Receive Date: 20160113
  Receipt Date: 20170214
  Transmission Date: 20170428
  Serious: Yes (Other)
  Sender: FDA-Public Use
  Company Number: US-PFIZER INC-2016011384

PATIENT
  Age: 67 Year
  Sex: Female
  Weight: 121.5 kg

DRUGS (1)
  1. DOXYCYCLINE MONOHYDRATE [Suspect]
     Active Substance: DOXYCYCLINE
     Indication: ROSACEA
     Dosage: 100 MG, 2X/DAY
     Route: 048
     Dates: start: 20100326, end: 20100413

REACTIONS (8)
  - Malaise [Unknown]
  - Drug hypersensitivity [Recovered/Resolved]
  - Pyrexia [Recovered/Resolved]
  - Myalgia [Unknown]
  - Pain [Unknown]
  - Headache [Unknown]
  - Meningitis aseptic [Recovered/Resolved]
  - Chills [Unknown]

NARRATIVE: CASE EVENT DATE: 20100326
